FAERS Safety Report 17317206 (Version 17)
Quarter: 2020Q4

REPORT INFORMATION
  Report Type: Spontaneous
  Country: US (occurrence: US)
  Receive Date: 20200124
  Receipt Date: 20201228
  Transmission Date: 20210113
  Serious: Yes (Other)
  Sender: FDA-Public Use
  Company Number: US-SHIRE-US202001903

PATIENT
  Sex: Female
  Weight: 61.22 kg

DRUGS (28)
  1. CUVITRU [Suspect]
     Active Substance: HUMAN IMMUNOGLOBULIN G
     Dosage: 16 GRAM, 1X/2WKS
     Route: 058
     Dates: start: 20181105
  2. CUVITRU [Suspect]
     Active Substance: HUMAN IMMUNOGLOBULIN G
     Dosage: 15 GRAM, 1X/2WKS
     Route: 058
     Dates: start: 20191120
  3. SINGULAIR [Concomitant]
     Active Substance: MONTELUKAST SODIUM
  4. LEXAPRO [Concomitant]
     Active Substance: ESCITALOPRAM OXALATE
  5. CUVITRU [Suspect]
     Active Substance: HUMAN IMMUNOGLOBULIN G
     Indication: IMMUNODEFICIENCY COMMON VARIABLE
     Dosage: 15 GRAM, 1X/2WKS
     Route: 058
     Dates: start: 20181105
  6. EPINEPHRINE. [Concomitant]
     Active Substance: EPINEPHRINE
  7. AZELASTINE. [Concomitant]
     Active Substance: AZELASTINE HYDROCHLORIDE
  8. ORENCIA [Concomitant]
     Active Substance: ABATACEPT
  9. ATROVENT [Concomitant]
     Active Substance: IPRATROPIUM BROMIDE
  10. ATROVENT HFA [Concomitant]
     Active Substance: IPRATROPIUM BROMIDE
  11. KEPPRA [Concomitant]
     Active Substance: LEVETIRACETAM
  12. CYANOCOBALAMIN. [Concomitant]
     Active Substance: CYANOCOBALAMIN
  13. EPIPEN [Concomitant]
     Active Substance: EPINEPHRINE
  14. TOPROL XL [Concomitant]
     Active Substance: METOPROLOL SUCCINATE
  15. CUVITRU [Suspect]
     Active Substance: HUMAN IMMUNOGLOBULIN G
     Dosage: 15 GRAM, 1X/2WKS
     Route: 058
     Dates: start: 20181107
  16. TRELEGY ELLIPTA [Concomitant]
     Active Substance: FLUTICASONE FUROATE\UMECLIDINIUM BROMIDE\VILANTEROL TRIFENATATE
  17. RESTASIS [Concomitant]
     Active Substance: CYCLOSPORINE
  18. RANITIDINE. [Concomitant]
     Active Substance: RANITIDINE
  19. TACROLIMUS. [Concomitant]
     Active Substance: TACROLIMUS
  20. DIPHENHYDRAMINE. [Concomitant]
     Active Substance: DIPHENHYDRAMINE
  21. ENALAPRIL MALEATE. [Concomitant]
     Active Substance: ENALAPRIL MALEATE
  22. IPRATROPIUM BROMIDE. [Concomitant]
     Active Substance: IPRATROPIUM BROMIDE
  23. HYQVIA [Concomitant]
     Active Substance: HUMAN IMMUNOGLOBULIN G\HYALURONIDASE RECOMBINANT HUMAN
  24. ASPIRIN (E.C.) [Concomitant]
     Active Substance: ASPIRIN
  25. ACETAMINOPHEN. [Concomitant]
     Active Substance: ACETAMINOPHEN
  26. LMX4 [Concomitant]
     Active Substance: LIDOCAINE
  27. LIPITOR [Concomitant]
     Active Substance: ATORVASTATIN CALCIUM
  28. GABAPENTIN. [Concomitant]
     Active Substance: GABAPENTIN

REACTIONS (15)
  - Fatigue [Unknown]
  - Infusion site pain [Recovered/Resolved]
  - Dizziness [Unknown]
  - Oedema [Unknown]
  - Fall [Unknown]
  - Infusion site reaction [Unknown]
  - Infusion site erythema [Unknown]
  - Loss of consciousness [Unknown]
  - Burning sensation [Recovered/Resolved]
  - Infusion site swelling [Unknown]
  - Heart rate irregular [Unknown]
  - Infusion site extravasation [Unknown]
  - Infusion site haemorrhage [Unknown]
  - Flushing [Unknown]
  - Incorrect drug administration rate [Unknown]
